FAERS Safety Report 9160303 (Version 2)
Quarter: 2013Q2

REPORT INFORMATION
  Report Type: Spontaneous
  Country: US (occurrence: US)
  Receive Date: 20130313
  Receipt Date: 20130424
  Transmission Date: 20140414
  Serious: Yes (Death, Hospitalization)
  Sender: FDA-Public Use
  Company Number: US-GILEAD-2013-0071592

PATIENT
  Age: 72 Year
  Sex: Female

DRUGS (3)
  1. LETAIRIS [Suspect]
     Indication: PULMONARY HYPERTENSION
     Dosage: 5 MG, QD
     Dates: start: 2010
  2. LETAIRIS [Suspect]
     Indication: PULMONARY EMBOLISM
  3. OXYGEN [Concomitant]

REACTIONS (3)
  - Cardio-respiratory arrest [Fatal]
  - Wound sepsis [Fatal]
  - Lung neoplasm malignant [Fatal]
